FAERS Safety Report 18458521 (Version 1)
Quarter: 2020Q4

REPORT INFORMATION
  Report Type: Spontaneous
  Country: US (occurrence: US)
  Receive Date: 20201103
  Receipt Date: 20201103
  Transmission Date: 20210114
  Serious: Yes (Other)
  Sender: FDA-Public Use
  Company Number: US-PURDUE-USA-2020-0174044

PATIENT
  Sex: Female

DRUGS (2)
  1. TRAMADOL. [Suspect]
     Active Substance: TRAMADOL
     Indication: PRODUCT USED FOR UNKNOWN INDICATION
     Dosage: UNKNOWN
     Route: 048
  2. OXYCODONE/ ACETAMINOPHEN TABLETS [Suspect]
     Active Substance: ACETAMINOPHEN\OXYCODONE HYDROCHLORIDE
     Indication: PRODUCT USED FOR UNKNOWN INDICATION
     Dosage: UNKNOWN
     Route: 048

REACTIONS (9)
  - Small intestine carcinoma [Unknown]
  - Abdominal pain [Unknown]
  - Hepatomegaly [Unknown]
  - Hypersomnia [Unknown]
  - Disturbance in attention [Unknown]
  - Functional gastrointestinal disorder [Unknown]
  - Speech disorder [Unknown]
  - Thinking abnormal [Unknown]
  - Hepatic function abnormal [Unknown]
